FAERS Safety Report 10802728 (Version 1)
Quarter: 2015Q1

REPORT INFORMATION
  Report Type: Spontaneous
  Country: US (occurrence: US)
  Receive Date: 20150217
  Receipt Date: 20150217
  Transmission Date: 20150721
  Serious: Yes (Hospitalization)
  Sender: FDA-Public Use
  Company Number: US-TEVA-540188USA

PATIENT
  Sex: Female

DRUGS (1)
  1. AZILECT [Suspect]
     Active Substance: RASAGILINE MESYLATE
     Dates: start: 20150124

REACTIONS (3)
  - Vomiting [Unknown]
  - Rash macular [Unknown]
  - Malaise [Unknown]

NARRATIVE: CASE EVENT DATE: 20150124
